FAERS Safety Report 10010616 (Version 2)
Quarter: 2014Q1

REPORT INFORMATION
  Report Type: Spontaneous
  Country: US (occurrence: US)
  Receive Date: 20140314
  Receipt Date: 20140314
  Transmission Date: 20141002
  Serious: No
  Sender: FDA-Public Use
  Company Number: US-DRREDDYS-USA/USA/14/0037187

PATIENT
  Age: 53 Year
  Sex: Male
  Weight: 83.99 kg

DRUGS (2)
  1. LANSOPRAZOLE DR CAPSULES 15MG OTC [Suspect]
     Indication: GASTROOESOPHAGEAL REFLUX DISEASE
     Route: 048
     Dates: start: 20131231, end: 20140107
  2. LANSOPRAZOLE DR CAPSULES 15MG OTC [Suspect]
     Indication: IRRITABLE BOWEL SYNDROME

REACTIONS (2)
  - Drug ineffective [Unknown]
  - Product quality issue [Unknown]
